FAERS Safety Report 13458831 (Version 4)
Quarter: 2017Q2

REPORT INFORMATION
  Report Type: Spontaneous
  Country: JP (occurrence: JP)
  Receive Date: 20170419
  Receipt Date: 20170630
  Transmission Date: 20170830
  Serious: Yes (Hospitalization, Other)
  Sender: FDA-Public Use
  Company Number: JP-ASTRAZENECA-2017SE39798

PATIENT
  Age: 16 Year
  Sex: Male
  Weight: 96 kg

DRUGS (19)
  1. PREDNISOLONE. [Concomitant]
     Active Substance: PREDNISOLONE
     Dosage: 2 MG, TWO TIMES A DAY, AFTER BREAKFAST AND EVENING MEAL
     Route: 048
     Dates: start: 20170511
  2. TETRAMIDE [Concomitant]
     Active Substance: MIANSERIN
     Dosage: 10 MG, EVERY DAY, BEFORE SLEEP
     Route: 048
     Dates: start: 20170329
  3. PASETOCIN [Concomitant]
     Active Substance: AMOXICILLIN
     Dosage: 250 MG, FOUR TIMES A DAY, AFTER EVERY MEAL AND BEFORE SLEEP
     Route: 048
     Dates: start: 20170324
  4. BYETTA [Suspect]
     Active Substance: EXENATIDE
     Indication: TYPE 2 DIABETES MELLITUS
     Dosage: DOSE UNKNOWN
     Route: 058
  5. DEPAKENE [Concomitant]
     Active Substance: VALPROIC ACID
     Dosage: 400 MG, TWO TIMES A DAY, AFTER BREAKFAST AND EVENING MEAL
     Route: 048
     Dates: start: 20170511
  6. CONTOMIN [Concomitant]
     Active Substance: CHLORPROMAZINE
     Dosage: 25 MG, EVERY DAY, BEFORE SLEEP
     Route: 048
     Dates: start: 20170329
  7. MINIRINMELT OD [Concomitant]
     Dosage: 60 MCG, TWO TIMES A DAY, RIGHT BEFORE BREAKFAST AND LUNCH
     Route: 048
     Dates: start: 20170511
  8. VASOPRESSIN. [Concomitant]
     Active Substance: VASOPRESSIN
     Indication: DIABETES INSIPIDUS
     Dosage: DOSE UNKNOWN
     Route: 065
  9. BIOLACTIS [Concomitant]
     Active Substance: LACTOBACILLUS CASEI
     Dosage: 1 G, EVERY DAY, AFTER BREAKFAST
     Route: 065
     Dates: start: 20170511
  10. AMLODIN [Concomitant]
     Active Substance: AMLODIPINE BESYLATE
     Dosage: 2.5 MG EVERY DAY, AFTER EVENING MEAL
     Route: 048
     Dates: start: 20170324
  11. THYRADIN S [Concomitant]
     Active Substance: LEVOTHYROXINE SODIUM
     Dosage: 125 MCG, EVERY DAY, AFTER BREAKFAST
     Route: 048
     Dates: start: 20170511
  12. HERBAL NOS [Concomitant]
     Active Substance: HERBALS
     Dosage: 2.5 G, THREE TIMES A DAY, 30 MINS BEFORE EVERY MEAL
     Route: 048
     Dates: start: 20170511
  13. FORXIGA [Suspect]
     Active Substance: DAPAGLIFLOZIN
     Indication: TYPE 2 DIABETES MELLITUS
     Dosage: 5.0MG UNKNOWN
     Route: 048
     Dates: start: 201703, end: 2017
  14. DEPAKENE [Concomitant]
     Active Substance: VALPROIC ACID
     Dosage: 400 MG, TWO TIMES A DAY, AFTER BREAKFAST AND EVENING MEAL
     Route: 048
     Dates: start: 20170324
  15. LIPIDIL [Concomitant]
     Active Substance: FENOFIBRATE
     Dosage: 106.6 MG, EVERY DAY, AFTER BREAKFAST
     Route: 048
     Dates: start: 20170511
  16. MINIRINMELT OD [Concomitant]
     Dosage: 240 MCG, EVERY DAY, BEFORE SLEEP
     Route: 048
     Dates: start: 20170511
  17. AMLODIN [Concomitant]
     Active Substance: AMLODIPINE BESYLATE
     Dosage: 2.5 MG EVERY DAY, AFTER EVENING MEAL
     Route: 048
     Dates: start: 20170511
  18. PREDONINE [Concomitant]
     Active Substance: PREDNISOLONE
     Dosage: 5 MG, EVERY DAY, AFTER BREAKFAST
     Route: 048
     Dates: start: 20170511
  19. CONTOMIN [Concomitant]
     Active Substance: CHLORPROMAZINE
     Dosage: 50 MG, EVERY DAY, BEFORE SLEEP
     Route: 048
     Dates: start: 20170511

REACTIONS (7)
  - Altered state of consciousness [Recovered/Resolved]
  - Dehydration [Recovered/Resolved]
  - Restlessness [Unknown]
  - Dysphoria [Unknown]
  - Diabetic hyperosmolar coma [Recovered/Resolved]
  - Hypernatraemia [Unknown]
  - Adrenal insufficiency [Unknown]

NARRATIVE: CASE EVENT DATE: 201701
